FAERS Safety Report 18772419 (Version 1)
Quarter: 2021Q1

REPORT INFORMATION
  Report Type: Spontaneous
  Country: CA (occurrence: CA)
  Receive Date: 20210122
  Receipt Date: 20210122
  Transmission Date: 20210419
  Serious: Yes (Other)
  Sender: FDA-Public Use
  Company Number: NVSC2021CA003344

PATIENT
  Age: 68 Year
  Sex: Female

DRUGS (3)
  1. BEOVU [Suspect]
     Active Substance: BROLUCIZUMAB-DBLL
     Dosage: UNK
     Route: 031
     Dates: start: 20210106
  2. BEOVU [Suspect]
     Active Substance: BROLUCIZUMAB-DBLL
     Indication: NEOVASCULAR AGE-RELATED MACULAR DEGENERATION
     Dosage: UNK
     Route: 031
     Dates: start: 20201113
  3. BEOVU [Suspect]
     Active Substance: BROLUCIZUMAB-DBLL
     Dosage: UNK
     Route: 031
     Dates: start: 20201209

REACTIONS (9)
  - Vitreous floaters [Not Recovered/Not Resolved]
  - Headache [Unknown]
  - Eye inflammation [Not Recovered/Not Resolved]
  - Visual acuity reduced [Unknown]
  - Vitritis [Unknown]
  - Anterior chamber cell [Unknown]
  - Retinopathy hypertensive [Unknown]
  - Vision blurred [Unknown]
  - Uveitis [Unknown]

NARRATIVE: CASE EVENT DATE: 20201230
